FAERS Safety Report 17727620 (Version 3)
Quarter: 2021Q2

REPORT INFORMATION
  Report Type: Spontaneous
  Country: PL (occurrence: PL)
  Receive Date: 20200430
  Receipt Date: 20210430
  Transmission Date: 20210716
  Serious: Yes (Hospitalization, Other)
  Sender: FDA-Public Use
  Company Number: PL-MYLANLABS-2020M1041193

PATIENT
  Age: 56 Year
  Sex: Female

DRUGS (22)
  1. CLARITHROMYCIN. [Suspect]
     Active Substance: CLARITHROMYCIN
     Indication: OTITIS MEDIA ACUTE
  2. KETOCONAZOLE. [Suspect]
     Active Substance: KETOCONAZOLE
     Indication: OTITIS MEDIA ACUTE
     Dosage: UNK
     Route: 065
  3. FUROSEMIDE. [Suspect]
     Active Substance: FUROSEMIDE
     Indication: OEDEMA PERIPHERAL
  4. ENOXAPARIN [Suspect]
     Active Substance: ENOXAPARIN
     Indication: OEDEMA PERIPHERAL
     Dosage: UNK
     Route: 065
  5. HYDROKSYETYLOSKROBIA [Concomitant]
     Dosage: UNK
  6. HAES [Suspect]
     Active Substance: HETASTARCH
     Indication: PNEUMONIA MYCOPLASMAL
     Dosage: UNK
     Route: 042
  7. POTASSIUM CHLORIDE. [Suspect]
     Active Substance: POTASSIUM CHLORIDE
     Indication: OEDEMA PERIPHERAL
     Dosage: UNK
     Route: 065
  8. ENOXAPARIN [Suspect]
     Active Substance: ENOXAPARIN
     Indication: HYPOKALAEMIA
  9. DEXAMETHASONE. [Suspect]
     Active Substance: DEXAMETHASONE
     Indication: OTITIS MEDIA ACUTE
     Dosage: UNK
     Route: 065
  10. CEFUROXIME. [Suspect]
     Active Substance: CEFUROXIME
     Indication: OTITIS MEDIA ACUTE
     Dosage: UNK
     Route: 065
  11. PENTOXIFYLLINE. [Suspect]
     Active Substance: PENTOXIFYLLINE
     Indication: PNEUMONIA MYCOPLASMAL
     Dosage: UNK
     Route: 042
  12. CIPROFLOXACIN. [Suspect]
     Active Substance: CIPROFLOXACIN
     Indication: PNEUMONIA
     Dosage: UNK
     Route: 042
  13. CO?CARBOXYLASE [Suspect]
     Active Substance: COCARBOXYLASE
     Indication: OTITIS MEDIA ACUTE
     Dosage: UNK
     Route: 065
  14. OMEPRAZOLE. [Suspect]
     Active Substance: OMEPRAZOLE
     Indication: PNEUMONIA MYCOPLASMAL
     Dosage: UNK
     Route: 042
  15. LIGNOCAINE                         /00033401/ [Suspect]
     Active Substance: LIDOCAINE HYDROCHLORIDE
     Indication: OTITIS MEDIA ACUTE
     Dosage: UNK
     Route: 065
  16. METHYLPREDNISOLONE. [Suspect]
     Active Substance: METHYLPREDNISOLONE
     Indication: PNEUMONIA MYCOPLASMAL
     Dosage: UNK
     Route: 042
  17. AMOXICILLIN. [Suspect]
     Active Substance: AMOXICILLIN
     Indication: UPPER RESPIRATORY TRACT INFECTION
     Dosage: UNK
     Route: 065
  18. CLARITHROMYCIN. [Suspect]
     Active Substance: CLARITHROMYCIN
     Indication: PNEUMONIA MYCOPLASMAL
     Dosage: UNK
     Route: 042
  19. CLARITHROMYCIN. [Suspect]
     Active Substance: CLARITHROMYCIN
     Indication: PNEUMONIA
  20. FUROSEMIDE. [Suspect]
     Active Substance: FUROSEMIDE
     Indication: HYPOKALAEMIA
     Dosage: UNK
     Route: 065
  21. POTASSIUM CHLORIDE. [Suspect]
     Active Substance: POTASSIUM CHLORIDE
     Indication: HYPOKALAEMIA
  22. CEFTRIAXONE DISODIUM [Suspect]
     Active Substance: CEFTRIAXONE
     Indication: PNEUMONIA
     Dosage: UNK
     Route: 042

REACTIONS (12)
  - Otitis media acute [Recovering/Resolving]
  - Hypokalaemia [Unknown]
  - Pneumonia [Unknown]
  - Off label use [Unknown]
  - Deafness bilateral [Recovering/Resolving]
  - Electrolyte imbalance [Unknown]
  - Product use in unapproved indication [Unknown]
  - Pneumonia mycoplasmal [Recovering/Resolving]
  - Oedema peripheral [Unknown]
  - Drug ineffective [Recovered/Resolved]
  - Dizziness [Unknown]
  - Vertigo [Unknown]
